FAERS Safety Report 6534480-2 (Version None)
Quarter: 2009Q4

REPORT INFORMATION
  Report Type: 
  Country: None (occurrence: None)
  Receive Date: 20091228
  Receipt Date: 20080820
  Transmission Date: 20100525
  Serious: Yes (Life-Threatening, Hospitalization)
  Sender: FDA-Public Use
  Company Number: US-001778

PATIENT
  Age: 72 Year
  Sex: Female

DRUGS (4)
  1. MULTIHANCE [Suspect]
     Indication: HEADACHE
     Dosage: 7ML QD INTRAVENOUS (NOT OTHERWISE SPECIFIED)
     Route: 042
     Dates: start: 20080819, end: 20080819
  2. MULTIHANCE [Suspect]
     Indication: NUCLEAR MAGNETIC RESONANCE IMAGING BRAIN
     Dosage: 7ML QD INTRAVENOUS (NOT OTHERWISE SPECIFIED)
     Route: 042
     Dates: start: 20080819, end: 20080819
  3. NEXIUM [Concomitant]
  4. INSULIN (INSULIN) [Concomitant]

REACTIONS (1)
  - ANAPHYLACTIC REACTION [None]
